FAERS Safety Report 23345066 (Version 2)
Quarter: 2024Q1

REPORT INFORMATION
  Report Type: Spontaneous
  Country: US (occurrence: US)
  Receive Date: 20231228
  Receipt Date: 20240319
  Transmission Date: 20240409
  Serious: Yes (Other)
  Sender: FDA-Public Use
  Company Number: US-CIPLA (EU) LIMITED-2023US07550

PATIENT

DRUGS (1)
  1. LENALIDOMIDE [Suspect]
     Active Substance: LENALIDOMIDE
     Indication: Plasma cell myeloma
     Dosage: 2.5 MILLIGRAM, QD FOR 14 DAYS ON AND 14 DAYS OFF (STRENGTH: 2.5 MG)
     Route: 065
     Dates: end: 20231210

REACTIONS (4)
  - Neuropathy peripheral [Unknown]
  - Pruritus [Unknown]
  - Limb discomfort [Unknown]
  - Muscular weakness [Unknown]

NARRATIVE: CASE EVENT DATE: 20230101
